FAERS Safety Report 9285500 (Version 1)
Quarter: 2013Q2

REPORT INFORMATION
  Report Type: Spontaneous
  Country: SE (occurrence: None)
  Receive Date: 20130506
  Receipt Date: 20130506
  Transmission Date: 20140414
  Serious: Yes (Life-Threatening, Hospitalization)
  Sender: FDA-Public Use
  Company Number: SYM-2013-03328

PATIENT
  Age: 23 Year
  Sex: Female

DRUGS (6)
  1. VOXRA [Suspect]
     Dates: start: 20130416
  2. EFFEXOR [Suspect]
     Dates: start: 20130416
  3. LAMOTRIGINE (LAMOTRIGINE) (LAMOTRIGINE) [Suspect]
     Dates: start: 20130416
  4. ZOPICLONE [Suspect]
     Dates: start: 20130416
  5. SERTRALINE (SERTRALINE) (SERTRALINE) [Suspect]
     Dates: start: 20130416
  6. ETHANOL [Suspect]
     Dates: start: 20130416

REACTIONS (3)
  - Intentional overdose [None]
  - Feeling abnormal [None]
  - Vomiting [None]
